FAERS Safety Report 4349700-2 (Version None)
Quarter: 2004Q1

REPORT INFORMATION
  Report Type: 
  Country: None (occurrence: None)
  Receive Date: 20040329
  Receipt Date: 20040218
  Transmission Date: 20041129
  Serious: No
  Sender: FDA-Public Use
  Company Number: USA040157464

PATIENT
  Age: 10 Year
  Sex: Male
  Weight: 28 kg

DRUGS (3)
  1. STRATTERA [Suspect]
     Indication: RETCHING
     Dosage: 25 MG/DAY
     Dates: start: 20040116
  2. ZOLOFT [Concomitant]
  3. AZITHROMYCIN [Concomitant]

REACTIONS (4)
  - ABNORMAL BEHAVIOUR [None]
  - AFFECT LABILITY [None]
  - CRYING [None]
  - DRUG INEFFECTIVE [None]
